FAERS Safety Report 8167667-6 (Version None)
Quarter: 2012Q1

REPORT INFORMATION
  Report Type: 
  Country: None (occurrence: None)
  Receive Date: 20120227
  Receipt Date: 20120217
  Transmission Date: 20120608
  Serious: Yes (Other)
  Sender: FDA-Public Use
  Company Number: US-BAYER-2012-016564

PATIENT
  Sex: Female

DRUGS (6)
  1. ZINC OXID [Suspect]
     Dosage: UNK
  2. CIPRO [Suspect]
  3. CEPHALEXIN [Concomitant]
     Dosage: UNK
  4. MACRODANTIN [Suspect]
     Dosage: UNK
  5. SULFUR [Suspect]
     Dosage: UNK
  6. AMOXICILLIN [Suspect]
     Dosage: UNK

REACTIONS (2)
  - DRUG HYPERSENSITIVITY [None]
  - SKIN DISCOLOURATION [None]
